FAERS Safety Report 12289194 (Version 1)
Quarter: 2016Q2

REPORT INFORMATION
  Report Type: Spontaneous
  Country: FR (occurrence: FR)
  Receive Date: 20160421
  Receipt Date: 20160421
  Transmission Date: 20160815
  Serious: Yes (Other)
  Sender: FDA-Public Use
  Company Number: FR-009507513-1604FRA011775

PATIENT
  Age: 24 Year
  Sex: Female
  Weight: 74 kg

DRUGS (4)
  1. LEXOMIL [Concomitant]
     Active Substance: BROMAZEPAM
  2. DEPAKINE CHRONO [Concomitant]
     Active Substance: VALPROATE SODIUM
  3. TRILEPTAL [Concomitant]
     Active Substance: OXCARBAZEPINE
  4. NEXPLANON [Suspect]
     Active Substance: ETONOGESTREL
     Indication: CONTRACEPTION
     Dosage: IN THE LEFT ARM
     Route: 059
     Dates: start: 20140702

REACTIONS (10)
  - Polyuria [Unknown]
  - Pregnancy with implant contraceptive [Unknown]
  - Amenorrhoea [Unknown]
  - Abdominal pain [Unknown]
  - Vomiting [Unknown]
  - Increased appetite [Unknown]
  - Unintended pregnancy [Unknown]
  - Epilepsy [Unknown]
  - Menstruation irregular [Unknown]
  - Weight increased [Unknown]

NARRATIVE: CASE EVENT DATE: 20140702
